FAERS Safety Report 5087790-2 (Version None)
Quarter: 2006Q3

REPORT INFORMATION
  Report Type: 
  Country: None (occurrence: None)
  Receive Date: 20060824
  Receipt Date: 20060822
  Transmission Date: 20061208
  Serious: Yes (Hospitalization, Other)
  Sender: FDA-Public Use
  Company Number: ES-JNJFOC-20040705324

PATIENT
  Age: 48 Year
  Sex: Female

DRUGS (9)
  1. REMICADE [Suspect]
     Route: 042
  2. REMICADE [Suspect]
     Route: 042
  3. REMICADE [Suspect]
     Route: 042
  4. REMICADE [Suspect]
     Route: 042
  5. REMICADE [Suspect]
     Indication: PSORIATIC ARTHROPATHY
     Route: 042
  6. METHOTREXATE [Concomitant]
  7. CEMIDON [Concomitant]
  8. FOLIC ACID [Concomitant]
  9. NAPROXEN [Concomitant]

REACTIONS (13)
  - BLINDNESS UNILATERAL [None]
  - CLUMSINESS [None]
  - COORDINATION ABNORMAL [None]
  - DEMYELINATION [None]
  - GAIT DISTURBANCE [None]
  - MULTIPLE SCLEROSIS [None]
  - MYELITIS [None]
  - OPTIC NEUROPATHY [None]
  - PARAESTHESIA [None]
  - PARAPARESIS [None]
  - THERAPY NON-RESPONDER [None]
  - TRIGEMINAL NERVE DISORDER [None]
  - VISUAL ACUITY REDUCED [None]
